FAERS Safety Report 9840671 (Version 1)
Quarter: 2014Q1

REPORT INFORMATION
  Report Type: Spontaneous
  Country: US (occurrence: US)
  Receive Date: 20140124
  Receipt Date: 20140124
  Transmission Date: 20141002
  Serious: No
  Sender: FDA-Public Use
  Company Number: US-PFIZER INC-2014022829

PATIENT
  Age: 58 Year
  Sex: Male

DRUGS (1)
  1. CHANTIX [Suspect]
     Indication: SMOKING CESSATION THERAPY
     Dosage: UNK
     Dates: start: 20140117

REACTIONS (5)
  - Somnolence [Not Recovered/Not Resolved]
  - Feeling of relaxation [Not Recovered/Not Resolved]
  - Slow speech [Not Recovered/Not Resolved]
  - Sedation [Not Recovered/Not Resolved]
  - Impaired driving ability [Not Recovered/Not Resolved]
